FAERS Safety Report 18092385 (Version 1)
Quarter: 2020Q3

REPORT INFORMATION
  Report Type: Spontaneous
  Country: US (occurrence: US)
  Receive Date: 20200730
  Receipt Date: 20200730
  Transmission Date: 20201103
  Serious: Yes (Other)
  Sender: FDA-Public Use
  Company Number: US-STRIDES ARCOLAB LIMITED-2019SP008600

PATIENT
  Age: 70 Year
  Sex: Male

DRUGS (2)
  1. MYCOPHENOLATE MOFETIL. [Suspect]
     Active Substance: MYCOPHENOLATE MOFETIL
     Indication: MYASTHENIA GRAVIS
     Dosage: 500 MG, BID
     Route: 065
  2. PREDNISOLONE. [Suspect]
     Active Substance: PREDNISOLONE
     Indication: MYASTHENIA GRAVIS
     Dosage: 15 MILLIGRAM DAILY
     Route: 065

REACTIONS (8)
  - Productive cough [Unknown]
  - Disseminated cryptococcosis [Unknown]
  - Pulmonary mass [Recovered/Resolved]
  - Fatigue [Unknown]
  - Skin lesion [Recovered/Resolved]
  - Off label use [Unknown]
  - Skin necrosis [Recovered/Resolved]
  - Dyspnoea [Unknown]
